FAERS Safety Report 6074988-X (Version None)
Quarter: 2009Q1

REPORT INFORMATION
  Report Type: 
  Country: None (occurrence: None)
  Receive Date: 20090210
  Receipt Date: 20090126
  Transmission Date: 20090719
  Serious: Yes (Disabling)
  Sender: FDA-Public Use
  Company Number: US025398

PATIENT
  Age: 63 Year
  Sex: Male
  Weight: 83.9154 kg

DRUGS (8)
  1. ACTIQ [Suspect]
     Indication: BACK PAIN
     Dosage: 1600 UG FOUR TIMES DAILY AS NEEDED BUCCAL
     Route: 003
     Dates: start: 20040101
  2. FENTANYL [Concomitant]
  3. OXYCONTIN [Concomitant]
  4. TYLENOL W/ CODEINE NO. 4 [Concomitant]
  5. AMBIEN [Concomitant]
  6. TRAZODONE HCL [Concomitant]
  7. MIRALAX [Concomitant]
  8. FLOMAX [Concomitant]

REACTIONS (3)
  - DENTAL CARIES [None]
  - DRUG INEFFECTIVE [None]
  - TOOTH ABSCESS [None]
